APPROVED DRUG PRODUCT: PROPRANOLOL HYDROCHLORIDE
Active Ingredient: PROPRANOLOL HYDROCHLORIDE
Strength: 60MG
Dosage Form/Route: TABLET;ORAL
Application: A216663 | Product #004 | TE Code: AB
Applicant: MANKIND PHARMA LTD
Approved: Jan 27, 2026 | RLD: No | RS: No | Type: RX